FAERS Safety Report 6091295-X (Version None)
Quarter: 2009Q1

REPORT INFORMATION
  Report Type: 
  Country: None (occurrence: None)
  Receive Date: 20090225
  Receipt Date: 20090216
  Transmission Date: 20090719
  Serious: Yes (Death)
  Sender: FDA-Public Use
  Company Number: JP-AMGEN-US334872

PATIENT
  Age: 83 Year
  Sex: Female

DRUGS (7)
  1. ENBREL [Suspect]
     Indication: RHEUMATOID ARTHRITIS
     Route: 058
     Dates: end: 20090129
  2. ENBREL [Suspect]
     Dosage: 25 MG/WK
     Route: 058
     Dates: start: 20060801
  3. BENET [Concomitant]
     Indication: OSTEOPOROSIS
     Route: 048
     Dates: start: 20060101, end: 20090129
  4. ARICEPT [Concomitant]
     Indication: SENILE DEMENTIA
     Route: 048
     Dates: start: 20060101, end: 20090129
  5. NITOROL [Concomitant]
     Indication: MYOCARDIAL ISCHAEMIA
     Route: 048
     Dates: start: 20060101, end: 20090129
  6. PERSANTINE [Concomitant]
     Route: 048
     Dates: start: 20060101, end: 20090129
  7. MOBIC [Concomitant]
     Route: 048
     Dates: start: 20060101, end: 20090129

REACTIONS (1)
  - SUDDEN DEATH [None]
